FAERS Safety Report 8993009 (Version 1)
Quarter: 2013Q1

REPORT INFORMATION
  Report Type: Spontaneous
  Country: GB (occurrence: GB)
  Receive Date: 20130102
  Receipt Date: 20130102
  Transmission Date: 20140127
  Serious: Yes (Death, Hospitalization, Other)
  Sender: FDA-Public Use
  Company Number: PHFR2012GB005602

PATIENT
  Age: 48 Year
  Sex: Male

DRUGS (2)
  1. CLOZARIL [Suspect]
     Indication: SCHIZOPHRENIA
     Dosage: 100 MG IN MORNING AND 400 MG AT NIGHT
     Route: 048
     Dates: start: 20021110
  2. ARIPIPRAZOLE [Concomitant]
     Indication: SCHIZOPHRENIA
     Dosage: 10 MG, UNK
     Route: 048

REACTIONS (9)
  - Brain neoplasm [Fatal]
  - Metastases to central nervous system [Fatal]
  - Malignant melanoma [Fatal]
  - Fall [Unknown]
  - Thinking abnormal [Unknown]
  - Gait disturbance [Unknown]
  - Neutrophil count increased [Unknown]
  - White blood cell count increased [Unknown]
  - Fatigue [Unknown]
